FAERS Safety Report 4720328-5 (Version None)
Quarter: 2005Q3

REPORT INFORMATION
  Report Type: 
  Country: None (occurrence: None)
  Receive Date: 20050719
  Receipt Date: 20050705
  Transmission Date: 20060218
  Serious: Yes (Hospitalization)
  Sender: FDA-Public Use
  Company Number: 2005BI007519

PATIENT
  Age: 61 Year
  Sex: Female
  Weight: 44.9061 kg

DRUGS (4)
  1. AVONEX [Suspect]
     Indication: MULTIPLE SCLEROSIS
     Dosage: 30 UG QW IM
     Route: 030
     Dates: start: 19960101, end: 20030101
  2. AVONEX [Suspect]
     Indication: MULTIPLE SCLEROSIS
     Dosage: 30 UG QW IM
     Route: 030
     Dates: start: 20030101
  3. AMANTADINE [Concomitant]
  4. BACLOFEN [Concomitant]

REACTIONS (13)
  - ABASIA [None]
  - CHRONIC OBSTRUCTIVE PULMONARY DISEASE [None]
  - DECUBITUS ULCER [None]
  - DIABETES MELLITUS [None]
  - DISEASE PROGRESSION [None]
  - DYSSTASIA [None]
  - EMPHYSEMA [None]
  - HIATUS HERNIA [None]
  - HYPERTENSION [None]
  - INFLAMMATION [None]
  - LUNG DISORDER [None]
  - MULTIPLE SCLEROSIS [None]
  - STAPHYLOCOCCAL INFECTION [None]
